FAERS Safety Report 13335331 (Version 1)
Quarter: 2017Q1

REPORT INFORMATION
  Report Type: Spontaneous
  Country: US (occurrence: US)
  Receive Date: 20170314
  Receipt Date: 20170314
  Transmission Date: 20170428
  Serious: No
  Sender: FDA-Public Use
  Company Number: US-GALDERMA-US16004532

PATIENT
  Age: 45 Year
  Sex: Female

DRUGS (3)
  1. TRI-LUMA [Suspect]
     Active Substance: FLUOCINOLONE ACETONIDE\HYDROQUINONE\TRETINOIN
     Indication: SCAR
  2. TRI-LUMA [Suspect]
     Active Substance: FLUOCINOLONE ACETONIDE\HYDROQUINONE\TRETINOIN
     Indication: CHLOASMA
     Route: 061
     Dates: start: 201510, end: 201605
  3. RETIN-A (TRETINOIN) [Concomitant]
     Indication: ACNE
     Route: 061

REACTIONS (4)
  - Rebound effect [Unknown]
  - Incorrect drug administration duration [Recovered/Resolved]
  - Incorrect product storage [Recovered/Resolved]
  - Intentional product misuse [Recovered/Resolved]

NARRATIVE: CASE EVENT DATE: 201510
